FAERS Safety Report 23995647 (Version 1)
Quarter: 2024Q2

REPORT INFORMATION
  Report Type: Report from Study
  Country: TR (occurrence: TR)
  Receive Date: 20240620
  Receipt Date: 20240620
  Transmission Date: 20240716
  Serious: Yes (Death)
  Sender: FDA-Public Use
  Company Number: TR-JNJFOC-20240647971

PATIENT
  Age: 1 Year
  Sex: Male

DRUGS (1)
  1. REMICADE [Suspect]
     Active Substance: INFLIXIMAB
     Indication: Myelodysplastic syndrome
     Route: 041

REACTIONS (2)
  - Infection [Fatal]
  - Off label use [Unknown]
